FAERS Safety Report 9298672 (Version 2)
Quarter: 2013Q2

REPORT INFORMATION
  Report Type: Spontaneous
  Country: AT (occurrence: AT)
  Receive Date: 20130517
  Receipt Date: 20130605
  Transmission Date: 20140414
  Serious: Yes (Hospitalization)
  Sender: FDA-Public Use
  Company Number: AT-BRACCO-000119

PATIENT
  Age: 5 Year
  Sex: Female
  Weight: 29.4 kg

DRUGS (2)
  1. MULTIHANCE [Suspect]
     Indication: NUCLEAR MAGNETIC RESONANCE IMAGING BRAIN
     Route: 042
     Dates: start: 20130425, end: 20130425
  2. PROPOFOL [Concomitant]
     Indication: SEDATION
     Dosage: LOW-DOSE
     Dates: start: 20130425

REACTIONS (3)
  - Grand mal convulsion [Recovered/Resolved]
  - Foaming at mouth [Recovered/Resolved]
  - Vomiting [Recovered/Resolved]
